FAERS Safety Report 5263482-1 (Version None)
Quarter: 2007Q1

REPORT INFORMATION
  Report Type: 
  Country: None (occurrence: None)
  Receive Date: 20061213
  Receipt Date: 20041129
  Transmission Date: 20070707
  Serious: Yes (Other)
  Sender: FDA-Public Use
  Company Number: 2004UW21247

PATIENT
  Age: 77 Year
  Sex: Female

DRUGS (1)
  1. IRESSA [Suspect]
     Dates: end: 20041026

REACTIONS (3)
  - DIARRHOEA [None]
  - PERSONALITY CHANGE [None]
  - WEIGHT DECREASED [None]
